FAERS Safety Report 4381442-X (Version None)
Quarter: 2004Q2

REPORT INFORMATION
  Report Type: 
  Country: None (occurrence: None)
  Receive Date: 20040617
  Receipt Date: 20040617
  Transmission Date: 20050107
  Serious: Yes (Hospitalization)
  Sender: FDA-Public Use
  Company Number: None

PATIENT
  Age: 51 Year
  Sex: Female
  Weight: 90.2658 kg

DRUGS (4)
  1. LIPITOR [Suspect]
     Indication: BLOOD CHOLESTEROL INCREASED
     Dosage: 1 TAB 1 PER DAY ORAL
     Route: 048
     Dates: start: 20020101, end: 20031112
  2. TRAMADOL [Concomitant]
  3. ZOLOFT [Concomitant]
  4. OMEPRAZOLE DR [Concomitant]

REACTIONS (1)
  - RHABDOMYOLYSIS [None]
